FAERS Safety Report 20045646 (Version 1)
Quarter: 2021Q4

REPORT INFORMATION
  Report Type: Spontaneous
  Country: CH (occurrence: CH)
  Receive Date: 20211108
  Receipt Date: 20211108
  Transmission Date: 20220304
  Serious: Yes (Hospitalization, Other)
  Sender: FDA-Public Use
  Company Number: None

PATIENT
  Age: 45 Year
  Sex: Male

DRUGS (3)
  1. IOPAMIRO [Suspect]
     Active Substance: IOPAMIDOL
     Indication: Arthralgia
     Dosage: 1 ML, SINGLE (BATCH NUMBER 2056B OR 2055B)
     Route: 014
     Dates: start: 20210901, end: 20210901
  2. DIPROPHOS [Suspect]
     Active Substance: BETAMETHASONE DIPROPIONATE\BETAMETHASONE SODIUM PHOSPHATE
     Indication: Arthralgia
     Dosage: IN TOTAL
     Route: 014
     Dates: start: 20210901, end: 20210901
  3. LIDOCAINE HYDROCHLORIDE [Suspect]
     Active Substance: LIDOCAINE HYDROCHLORIDE
     Indication: Arthralgia
     Dosage: 1 ML (1% IN 5ML)
     Route: 014
     Dates: start: 20210901, end: 20210901

REACTIONS (4)
  - Pyrexia [Recovered/Resolved]
  - Malaise [Recovered/Resolved]
  - Nausea [Recovered/Resolved]
  - Abdominal pain upper [Recovered/Resolved]

NARRATIVE: CASE EVENT DATE: 20210901
